FAERS Safety Report 16197762 (Version 1)
Quarter: 2019Q2

REPORT INFORMATION
  Report Type: Spontaneous
  Country: US (occurrence: US)
  Receive Date: 20190311
  Receipt Date: 20190311
  Transmission Date: 20190711
  Serious: No
  Sender: FDA-Public Use
  Company Number: None

PATIENT
  Sex: Female

DRUGS (1)
  1. VERZENIO [Suspect]
     Active Substance: ABEMACICLIB
     Indication: BREAST CANCER
     Route: 048
     Dates: start: 201902

REACTIONS (7)
  - Nausea [None]
  - Dizziness [None]
  - Tremor [None]
  - Vomiting [None]
  - Fatigue [None]
  - Decreased appetite [None]
  - Diarrhoea [None]
